FAERS Safety Report 6058881-4 (Version None)
Quarter: 2009Q1

REPORT INFORMATION
  Report Type: 
  Country: None (occurrence: None)
  Receive Date: 20090130
  Receipt Date: 20090128
  Transmission Date: 20090719
  Serious: Yes (Hospitalization)
  Sender: FDA-Public Use
  Company Number: GR-ABBOTT-08P-066-0493913-00

PATIENT
  Age: 51 Year
  Sex: Female
  Weight: 98 kg

DRUGS (6)
  1. ZEMPLAR [Suspect]
     Indication: HYPERPARATHYROIDISM SECONDARY
     Route: 042
     Dates: start: 20071008, end: 20071031
  2. VENOFER [Concomitant]
     Indication: MINERAL SUPPLEMENTATION
     Route: 042
  3. VENOFER [Concomitant]
     Route: 042
  4. NEUROBION [Concomitant]
     Indication: RENAL FAILURE CHRONIC
     Route: 042
  5. BIOTIN [Concomitant]
     Indication: RENAL FAILURE CHRONIC
     Route: 042
  6. ARANESP [Concomitant]
     Indication: ANAEMIA
     Route: 042

REACTIONS (3)
  - ENCEPHALITIS [None]
  - INFECTION [None]
  - PYREXIA [None]
